FAERS Safety Report 12606298 (Version 1)
Quarter: 2016Q3

REPORT INFORMATION
  Report Type: Spontaneous
  Country: US (occurrence: None)
  Receive Date: 20160728
  Receipt Date: 20160728
  Transmission Date: 20161109
  Serious: Yes (Life-Threatening, Hospitalization, Disabling)
  Sender: FDA-Public Use
  Company Number: None

PATIENT
  Age: 77 Year
  Sex: Female
  Weight: 77.11 kg

DRUGS (3)
  1. FLAGYL [Suspect]
     Active Substance: METRONIDAZOLE\METRONIDAZOLE HYDROCHLORIDE
     Indication: GASTROINTESTINAL INFECTION
     Route: 048
     Dates: start: 20160706, end: 20160713
  2. SULFASALZINE [Concomitant]
     Active Substance: SULFASALAZINE
  3. POTASSIUM SUPPLEMENTS [Concomitant]

REACTIONS (10)
  - Rectal haemorrhage [None]
  - Amnesia [None]
  - Confusional state [None]
  - Speech disorder [None]
  - Hallucination [None]
  - Crohn^s disease [None]
  - Asthenia [None]
  - Musculoskeletal stiffness [None]
  - Motor dysfunction [None]
  - Pain [None]

NARRATIVE: CASE EVENT DATE: 20160709
